FAERS Safety Report 5441662-X (Version None)
Quarter: 2007Q3

REPORT INFORMATION
  Report Type: 
  Country: None (occurrence: None)
  Receive Date: 20070904
  Receipt Date: 20070822
  Transmission Date: 20080115
  Serious: Yes (Other)
  Sender: FDA-Public Use
  Company Number: GB-SANOFI-SYNTHELABO-A01200709506

PATIENT
  Age: 67 Year
  Sex: Male
  Weight: 70 kg

DRUGS (3)
  1. PROSCAR [Concomitant]
     Indication: BENIGN PROSTATIC HYPERPLASIA
     Dosage: 5 MG
     Route: 048
     Dates: start: 20060214, end: 20070131
  2. CALCIUM AND VITAMIN D [Concomitant]
     Indication: VITAMIN SUPPLEMENTATION
     Route: 048
     Dates: start: 20060101, end: 20060327
  3. XATRAL XL [Suspect]
     Indication: BENIGN PROSTATIC HYPERPLASIA
     Route: 048
     Dates: start: 20060201, end: 20060824

REACTIONS (6)
  - ABDOMINAL PAIN [None]
  - BILIARY COLIC [None]
  - CHROMATURIA [None]
  - JAUNDICE CHOLESTATIC [None]
  - LEUKOPENIA [None]
  - THROMBOCYTOPENIA [None]
